FAERS Safety Report 7668356-4 (Version None)
Quarter: 2011Q3

REPORT INFORMATION
  Report Type: 
  Country: None (occurrence: None)
  Receive Date: 20110808
  Receipt Date: 20080224
  Transmission Date: 20111222
  Serious: Yes (Death, Other)
  Sender: FDA-Public Use
  Company Number: US-BAYER-200825102NA

PATIENT
  Age: 68 Year
  Sex: Male
  Weight: 95.455 kg

DRUGS (61)
  1. MAGNEVIST [Suspect]
     Indication: PRODUCT USED FOR UNKNOWN INDICATION
     Dosage: 40 ML, ONCE
     Route: 042
     Dates: start: 20010307, end: 20010307
  2. GADOLINIUM IN UNSPECIFIED DRUG [Suspect]
     Indication: ANGIOGRAM
     Dosage: 30 ML, ONCE
     Dates: start: 20060410, end: 20060410
  3. PLAVIX [Concomitant]
  4. ASPIRIN [Concomitant]
  5. AMIODARONE HCL [Concomitant]
  6. ZETIA [Concomitant]
  7. AMBIEN [Concomitant]
  8. FERRLECIT [Concomitant]
     Dosage: Q WEEK WITH DIALYSIS AS OF FEB 2005
     Route: 042
  9. NORVASC [Concomitant]
  10. CELEBREX [Concomitant]
  11. EPOGEN [Concomitant]
  12. FOSRENOL [Concomitant]
  13. LEVOXYL [Concomitant]
  14. ZETIA [Concomitant]
  15. LISINOPRIL [Concomitant]
  16. HUMALOG MIX 25/75 [Concomitant]
  17. PROTONIX [Concomitant]
  18. AVAPRO [Concomitant]
  19. ZITHROMAX [Concomitant]
  20. CLOTRIMAZOLE [Concomitant]
  21. EPOGEN [Concomitant]
     Dosage: 8000 U, TIW, TIW W/DIALYSIS AS OF FEB 2005
  22. MUCOMYST [Concomitant]
  23. RENAPHRO [Concomitant]
  24. CARDURA [Concomitant]
  25. DILANTIN [Concomitant]
  26. CARDIZEM CD [Concomitant]
  27. GADOLINIUM IN UNSPECIFIED DRUG [Suspect]
     Indication: NUCLEAR MAGNETIC RESONANCE IMAGING BRAIN
     Dosage: UNK, ONCE
     Dates: start: 20051011, end: 20051011
  28. COLACE [Concomitant]
  29. EPOGEN [Concomitant]
     Dosage: 10000 U, TIW, TIW ON DIALYSIS DAYS AS OF 31 JUL 2004
  30. KEFLEX [Concomitant]
  31. PHOSLO [Concomitant]
  32. CALCITRIOL [Concomitant]
  33. DILTIAZEM [Concomitant]
  34. ACYCLOVIR [Concomitant]
  35. MAGNEVIST [Suspect]
     Dosage: 10 ML, ONCE
     Dates: start: 20050107, end: 20050107
  36. WELCHOL [Concomitant]
  37. COREG [Concomitant]
  38. PHOSLO [Concomitant]
  39. MYCOPHENOLATE MOFETIL [Concomitant]
  40. VENOFER [Concomitant]
  41. LOTENSIN [Concomitant]
  42. DARBEPOETIN ALFA [Concomitant]
  43. FUROSEMIDE [Concomitant]
  44. MAGNEVIST [Suspect]
     Indication: NUCLEAR MAGNETIC RESONANCE IMAGING ABDOMINAL
     Dosage: UNK, ONCE
     Dates: start: 20030409, end: 20030409
  45. OMEGA 3 FATTY ACIDS [Concomitant]
  46. DIGOXIN [Concomitant]
  47. NIASPAN [Concomitant]
  48. VICODIN [Concomitant]
  49. HUMALOG [Concomitant]
  50. PREDNISONE [Concomitant]
  51. GABAPENTIN [Concomitant]
  52. ZOCOR [Concomitant]
  53. MAGNEVIST [Suspect]
     Indication: ANGIOGRAM
     Dosage: 10 ML
     Dates: start: 20031217
  54. SYNTHROID [Concomitant]
  55. TOPROL-XL [Concomitant]
  56. LIDOCAINE/PRILOCAINE [LIDOCAINE,PRILOCAINE] [Concomitant]
  57. LYRICA [Concomitant]
  58. SENSIPAR [Concomitant]
  59. NITROGLYCERIN [Concomitant]
  60. CLONIDINE [Concomitant]
  61. COUMADIN [Concomitant]

REACTIONS (12)
  - NEPHROGENIC SYSTEMIC FIBROSIS [None]
  - ANHEDONIA [None]
  - PAIN [None]
  - JOINT CONTRACTURE [None]
  - EMOTIONAL DISTRESS [None]
  - FIBROSIS [None]
  - INJURY [None]
  - GENERAL PHYSICAL HEALTH DETERIORATION [None]
  - SCAR [None]
  - QUALITY OF LIFE DECREASED [None]
  - MOBILITY DECREASED [None]
  - ANXIETY [None]
